FAERS Safety Report 7228978-1 (Version None)
Quarter: 2011Q1

REPORT INFORMATION
  Report Type: 
  Country: None (occurrence: None)
  Receive Date: 20110117
  Receipt Date: 20110114
  Transmission Date: 20110831
  Serious: Yes (Other)
  Sender: FDA-Public Use
  Company Number: TR-JNJFOC-20101108043

PATIENT
  Age: 9 Year
  Sex: Female

DRUGS (3)
  1. ALL TRANSRETINOIC ACID [Suspect]
     Indication: ACUTE PROMYELOCYTIC LEUKAEMIA
     Route: 065
  2. CHEMOTHERAPEUTICS NOS [Suspect]
     Indication: ACUTE PROMYELOCYTIC LEUKAEMIA
     Route: 065
  3. ALL TRANSRETINOIC ACID [Suspect]
     Route: 065

REACTIONS (2)
  - CARDITIS [None]
  - PULMONARY OEDEMA [None]
